FAERS Safety Report 6879792-8 (Version None)
Quarter: 2010Q3

REPORT INFORMATION
  Report Type: 
  Country: None (occurrence: None)
  Receive Date: 20100728
  Receipt Date: 20100721
  Transmission Date: 20110219
  Serious: Yes (Death, Hospitalization)
  Sender: FDA-Public Use
  Company Number: PHHY2010CA28016

PATIENT
  Sex: Female

DRUGS (1)
  1. SANDOSTATIN LAR [Suspect]
     Indication: OVARIAN CANCER
     Dosage: 20 MG EVERY 4 WEEKS
     Route: 030
     Dates: start: 20100308, end: 20100531

REACTIONS (2)
  - DEATH [None]
  - INTESTINAL OBSTRUCTION [None]
